FAERS Safety Report 8793806 (Version 3)
Quarter: 2014Q3

REPORT INFORMATION
  Report Type: Report from Study
  Country: US (occurrence: US)
  Receive Date: 20120918
  Receipt Date: 20140723
  Transmission Date: 20150326
  Serious: Yes (Hospitalization)
  Sender: FDA-Public Use
  Company Number: US-BRISTOL-MYERS SQUIBB COMPANY-16941353

PATIENT
  Age: 49 Year
  Sex: Female
  Weight: 104.5 kg

DRUGS (4)
  1. LORAZEPAM. [Concomitant]
     Active Substance: LORAZEPAM
     Dosage: TAB PRN
  2. PREDNISONE. [Concomitant]
     Active Substance: PREDNISONE
     Dosage: 2TABS/D
     Route: 048
  3. IPILIMUMAB [Suspect]
     Active Substance: IPILIMUMAB
     Indication: MALIGNANT MELANOMA
     Dosage: LAST DOSE; 27AUG12;TOTAL 322 MG
     Route: 042
     Dates: start: 20120806
  4. CIPROFLOXACIN. [Concomitant]
     Active Substance: CIPROFLOXACIN

REACTIONS (3)
  - Hyperthyroidism [Recovering/Resolving]
  - Autoimmune hepatitis [Recovering/Resolving]
  - Pyrexia [Recovering/Resolving]

NARRATIVE: CASE EVENT DATE: 20120904
